FAERS Safety Report 16431260 (Version 1)
Quarter: 2019Q2

REPORT INFORMATION
  Report Type: Report from Study
  Country: US (occurrence: US)
  Receive Date: 20190614
  Receipt Date: 20190614
  Transmission Date: 20190711
  Serious: Yes (Other)
  Sender: FDA-Public Use
  Company Number: US-PFIZER INC-2019250507

PATIENT

DRUGS (5)
  1. OXYGEN. [Concomitant]
     Active Substance: OXYGEN
     Indication: OXYGEN THERAPY
     Dosage: UNK (BY NASAL CANNULA; OXYGEN FLOW STARTING AT A BASELINE RATE OF 2 L/MIN)
     Route: 045
  2. FENTANYL CITRATE. [Suspect]
     Active Substance: FENTANYL CITRATE
     Indication: PREMEDICATION
  3. OXYGEN. [Concomitant]
     Active Substance: OXYGEN
     Dosage: UNK (BY NASAL CANNULA; RATE CAN BE INCREASED UP TO 8 L/MIN; DEPENDING ON OXYGEN SATURATION)
     Route: 045
  4. PROPOFOL. [Suspect]
     Active Substance: PROPOFOL
     Indication: SEDATIVE THERAPY
     Dosage: UNK (INFUSION; MEAN PROPOFOL DOSE ADMINISTERED WAS 176.8 +/- 93.1 MG (MEDIAN 150MG; RANGE 30-920 MG)
  5. FENTANYL CITRATE. [Suspect]
     Active Substance: FENTANYL CITRATE
     Indication: SEDATIVE THERAPY
     Dosage: UNK, SINGLE (ABOUT 3 MIN PRIOR TO THE START OF THE PROPOFOL; RANGE 25-250 MCG)

REACTIONS (2)
  - Oxygen saturation decreased [Unknown]
  - Sedation complication [Unknown]
